FAERS Safety Report 21132558 (Version 3)
Quarter: 2022Q3

REPORT INFORMATION
  Report Type: Report from Study
  Country: CA (occurrence: CA)
  Receive Date: 20220726
  Receipt Date: 20220909
  Transmission Date: 20221027
  Serious: Yes (Death, Life-Threatening, Hospitalization)
  Sender: FDA-Public Use
  Company Number: CA-SA-SAC20220721001179

PATIENT
  Age: 57 Year
  Sex: Female
  Weight: 56.4 kg

DRUGS (13)
  1. ANTI-THYMOCYTE GLOBULIN (RABBIT) NOS [Suspect]
     Active Substance: LAPINE T-LYMPHOCYTE IMMUNE GLOBULIN
     Dosage: 110 MG
     Route: 042
     Dates: start: 20220716
  2. ANTI-THYMOCYTE GLOBULIN (RABBIT) NOS [Suspect]
     Active Substance: LAPINE T-LYMPHOCYTE IMMUNE GLOBULIN
     Dosage: 110 MG
     Route: 042
     Dates: start: 20220717
  3. ANTI-THYMOCYTE GLOBULIN (RABBIT) NOS [Suspect]
     Active Substance: LAPINE T-LYMPHOCYTE IMMUNE GLOBULIN
     Dosage: 110 MG
     Route: 042
     Dates: start: 20220718
  4. ANTI-THYMOCYTE GLOBULIN (RABBIT) NOS [Suspect]
     Active Substance: LAPINE T-LYMPHOCYTE IMMUNE GLOBULIN
     Dosage: 110 MG
     Route: 042
     Dates: start: 20220719
  5. ANTI-THYMOCYTE GLOBULIN (RABBIT) NOS [Suspect]
     Active Substance: LAPINE T-LYMPHOCYTE IMMUNE GLOBULIN
     Dosage: 110 MG
     Route: 042
     Dates: start: 20220720
  6. METHOTREXATE [Suspect]
     Active Substance: METHOTREXATE
     Dosage: 71 MG (TOTAL DOSE)
     Route: 042
     Dates: start: 20220721
  7. METHOTREXATE [Suspect]
     Active Substance: METHOTREXATE
     Dosage: 71 MG
     Route: 042
     Dates: start: 20220723
  8. METHOTREXATE [Suspect]
     Active Substance: METHOTREXATE
     Dosage: 71 MG
     Route: 042
     Dates: start: 20220726
  9. METHOTREXATE [Suspect]
     Active Substance: METHOTREXATE
     Dosage: 71 MG
     Route: 042
     Dates: start: 20220731
  10. CYCLOSPORINE [Suspect]
     Active Substance: CYCLOSPORINE
     Dosage: 50 MG
     Route: 042
     Dates: start: 20220810, end: 20220811
  11. CYCLOSPORINE [Suspect]
     Active Substance: CYCLOSPORINE
     Dosage: 150 MG, BID
     Route: 048
     Dates: start: 20220812, end: 20220815
  12. CYCLOSPORINE [Suspect]
     Active Substance: CYCLOSPORINE
     Dosage: 80 MG, BID
     Route: 042
     Dates: start: 20220815, end: 20220816
  13. CYCLOSPORINE [Suspect]
     Active Substance: CYCLOSPORINE
     Dosage: 70 MG, BID
     Dates: start: 20220817

REACTIONS (4)
  - Acute graft versus host disease [Fatal]
  - Pyrexia [Not Recovered/Not Resolved]
  - Hypotension [Not Recovered/Not Resolved]
  - Systemic inflammatory response syndrome [Recovered/Resolved]

NARRATIVE: CASE EVENT DATE: 20220718
